FAERS Safety Report 6018701-0 (Version None)
Quarter: 2008Q4

REPORT INFORMATION
  Report Type: 
  Country: None (occurrence: None)
  Receive Date: 20081223
  Receipt Date: 20081218
  Transmission Date: 20090506
  Serious: Yes (Other)
  Sender: FDA-Public Use
  Company Number: ES-MERCK-0812ESP00038

PATIENT
  Age: 24 Month
  Sex: Male

DRUGS (6)
  1. SINGULAIR [Suspect]
     Indication: ASTHMA
     Route: 048
     Dates: start: 20081029, end: 20081112
  2. AMOXICILLIN AND CLAVULANATE POTASSIUM [Concomitant]
     Indication: RESPIRATORY TRACT INFECTION
     Route: 048
     Dates: start: 20081022, end: 20081029
  3. BUDESONIDE [Concomitant]
     Indication: ASTHMA
     Dates: start: 20081022, end: 20081105
  4. PREDNISOLONE STEAGLATE [Concomitant]
     Indication: ASTHMA
     Route: 048
     Dates: start: 20081022, end: 20081025
  5. ALBUTEROL SULFATE [Concomitant]
     Indication: ASTHMA
     Dates: start: 20081022, end: 20081029
  6. CHLORPHENIRAMINE MALEATE AND DIPHENHYDRAMINE HYDROCHLORIDE AND PHENYLE [Concomitant]
     Indication: NASOPHARYNGITIS
     Route: 048
     Dates: start: 20081029, end: 20081105

REACTIONS (4)
  - AGITATION [None]
  - ARTHRALGIA [None]
  - PSYCHOMOTOR HYPERACTIVITY [None]
  - SLEEP DISORDER [None]
